FAERS Safety Report 16562713 (Version 3)
Quarter: 2019Q4

REPORT INFORMATION
  Report Type: Spontaneous
  Country: BR (occurrence: BR)
  Receive Date: 20190711
  Receipt Date: 20191209
  Transmission Date: 20200122
  Serious: Yes (Hospitalization, Other)
  Sender: FDA-Public Use
  Company Number: BR-GLAXOSMITHKLINE-BR2018GSK214824

PATIENT
  Age: 65 Year
  Sex: Female
  Weight: 50 kg

DRUGS (1)
  1. NUCALA [Suspect]
     Active Substance: MEPOLIZUMAB
     Indication: ASTHMA
     Dosage: 100 MG, UNK
     Dates: start: 20181121

REACTIONS (15)
  - Injection site pain [Recovered/Resolved]
  - Productive cough [Unknown]
  - Hypersensitivity [Unknown]
  - Product dose omission [Unknown]
  - Inappropriate schedule of product administration [Unknown]
  - Asthma [Unknown]
  - Breath sounds abnormal [Unknown]
  - Dysphonia [Unknown]
  - Throat clearing [Unknown]
  - Nasal congestion [Unknown]
  - Dyspnoea [Unknown]
  - Cough [Unknown]
  - Sinusitis [Unknown]
  - Secretion discharge [Unknown]
  - Asthmatic crisis [Unknown]

NARRATIVE: CASE EVENT DATE: 20191025
